FAERS Safety Report 7476049-1 (Version None)
Quarter: 2011Q2

REPORT INFORMATION
  Report Type: 
  Country: None (occurrence: None)
  Receive Date: 20110505
  Receipt Date: 20110425
  Transmission Date: 20111010
  Serious: Yes (Death)
  Sender: FDA-Public Use
  Company Number: 2011040108

PATIENT
  Age: 90 Year
  Sex: Male

DRUGS (4)
  1. DURAGESIC-100 [Concomitant]
  2. OXYCONTIN [Concomitant]
  3. ONSOLIS [Suspect]
     Indication: BREAKTHROUGH PAIN
     Dosage: TO BE TITRATED UP TO 4-200 MCG
     Dates: start: 20100826
  4. PERCOCET [Concomitant]

REACTIONS (2)
  - LUNG NEOPLASM MALIGNANT [None]
  - NEOPLASM PROGRESSION [None]
